FAERS Safety Report 20111600 (Version 1)
Quarter: 2021Q4

REPORT INFORMATION
  Report Type: Spontaneous
  Country: US (occurrence: US)
  Receive Date: 20211125
  Receipt Date: 20211125
  Transmission Date: 20220303
  Serious: No
  Sender: FDA-Public Use
  Company Number: US-ESPERIONTHERAPEUTICS-2021USA02309

PATIENT
  Age: 72 Year
  Sex: Male
  Weight: 68.027 kg

DRUGS (1)
  1. NEXLETOL [Suspect]
     Active Substance: BEMPEDOIC ACID
     Indication: Low density lipoprotein increased
     Dosage: 180 MILLIGRAM, QD
     Route: 048
     Dates: start: 202109, end: 20211115

REACTIONS (1)
  - Headache [Not Recovered/Not Resolved]

NARRATIVE: CASE EVENT DATE: 20211101
